FAERS Safety Report 6480528-3 (Version None)
Quarter: 2009Q4

REPORT INFORMATION
  Report Type: 
  Country: None (occurrence: None)
  Receive Date: 20091203
  Receipt Date: 20091123
  Transmission Date: 20100525
  Serious: Yes (Hospitalization)
  Sender: FDA-Public Use
  Company Number: 91608

PATIENT
  Age: 72 Year
  Sex: Female

DRUGS (4)
  1. METHOTREXATE [Suspect]
     Indication: ARTHRITIS
     Dosage: 10MG X 1; 10MG X 2
  2. TOPICAL LIDOCAINE GEL [Concomitant]
  3. MAMMOGRAPHY [Concomitant]
  4. METHOTREXATE [Concomitant]

REACTIONS (6)
  - DIARRHOEA [None]
  - DRUG TOXICITY [None]
  - MEDICATION ERROR [None]
  - MUCOSAL INFLAMMATION [None]
  - OVERDOSE [None]
  - PANCYTOPENIA [None]
